FAERS Safety Report 5335342-9 (Version None)
Quarter: 2007Q2

REPORT INFORMATION
  Report Type: 
  Country: None (occurrence: None)
  Receive Date: 20070327
  Receipt Date: 20060414
  Transmission Date: 20071010
  Serious: Yes (Hospitalization)
  Sender: FDA-Public Use
  Company Number: 8016366

PATIENT
  Age: 47 Year
  Sex: Female
  Weight: 78.5 kg

DRUGS (4)
  1. LORTAB [Suspect]
     Indication: BACK PAIN
     Dosage: 10 MG 6/D PO
     Route: 048
     Dates: start: 20040101
  2. BLINDED TRIAL MEDICATION [Suspect]
     Indication: INTESTINAL FUNCTIONAL DISORDER
     Dosage: 2/D PO
     Route: 048
     Dates: start: 20051130, end: 20050101
  3. METHADONE HYDROCHLORIDE [Suspect]
     Indication: BACK PAIN
     Dosage: 10 MG 3/D PO
     Dates: start: 20040101
  4. OXYCODONE HCL [Suspect]
     Indication: BACK PAIN
     Dosage: 5 MG 3/D PO
     Dates: start: 20040101

REACTIONS (2)
  - LOSS OF CONSCIOUSNESS [None]
  - OVERDOSE [None]
